FAERS Safety Report 23869746 (Version 1)
Quarter: 2024Q2

REPORT INFORMATION
  Report Type: Report from Study
  Country: GB (occurrence: GB)
  Receive Date: 20240517
  Receipt Date: 20240517
  Transmission Date: 20240716
  Serious: Yes (Other)
  Sender: FDA-Public Use
  Company Number: GB-SAMSUNG BIOEPIS-SB-2024-14721

PATIENT
  Age: 62 Year
  Sex: Male

DRUGS (1)
  1. ETANERCEPT [Suspect]
     Active Substance: ETANERCEPT
     Indication: Rheumatoid arthritis
     Route: 058

REACTIONS (8)
  - Pneumothorax [Unknown]
  - Suicide attempt [Unknown]
  - Leukaemia [Unknown]
  - Pneumonia [Unknown]
  - Sepsis [Unknown]
  - Complication associated with device [Unknown]
  - Irritable bowel syndrome [Unknown]
  - Blood potassium decreased [Unknown]

NARRATIVE: CASE EVENT DATE: 20230101
